FAERS Safety Report 6846868-0 (Version None)
Quarter: 2010Q3

REPORT INFORMATION
  Report Type: 
  Country: None (occurrence: None)
  Receive Date: 20100715
  Receipt Date: 20070923
  Transmission Date: 20110219
  Serious: Yes (Other)
  Sender: FDA-Public Use
  Company Number: US-PFIZER INC-2007080582

PATIENT
  Sex: Male
  Weight: 90.909 kg

DRUGS (2)
  1. CHANTIX [Suspect]
     Indication: SMOKING CESSATION THERAPY
     Route: 048
     Dates: start: 20070824
  2. TOPROL-XL [Concomitant]
     Route: 048
     Dates: start: 20070101

REACTIONS (3)
  - EYE PAIN [None]
  - VISION BLURRED [None]
  - VISUAL IMPAIRMENT [None]
